FAERS Safety Report 15492471 (Version 1)
Quarter: 2018Q4

REPORT INFORMATION
  Report Type: Spontaneous
  Country: US (occurrence: US)
  Receive Date: 20181004
  Receipt Date: 20181004
  Transmission Date: 20190205
  Serious: No
  Sender: FDA-Public Use
  Company Number: None

PATIENT
  Age: 64 Year
  Sex: Female
  Weight: 45.8 kg

DRUGS (1)
  1. GEMCITABINE HYDROCHLORIDE. [Suspect]
     Active Substance: GEMCITABINE HYDROCHLORIDE
     Dates: end: 20180917

REACTIONS (5)
  - Abdominal distension [None]
  - Abdominal pain lower [None]
  - Thrombocytopenia [None]
  - Nausea [None]
  - Large intestinal obstruction [None]

NARRATIVE: CASE EVENT DATE: 20180920
